FAERS Safety Report 11879977 (Version 2)
Quarter: 2015Q4

REPORT INFORMATION
  Report Type: Spontaneous
  Country: GB (occurrence: GB)
  Receive Date: 20151230
  Receipt Date: 20151231
  Transmission Date: 20160305
  Serious: Yes (Other)
  Sender: FDA-Public Use
  Company Number: ALCN2015GB007947

PATIENT
  Age: 89 Year
  Sex: Female
  Weight: 50.8 kg

DRUGS (4)
  1. BRINZOLAMIDE [Suspect]
     Active Substance: BRINZOLAMIDE
     Indication: GLAUCOMA
     Dosage: 1 DF, BID
     Route: 047
     Dates: start: 20150611, end: 20151001
  2. DORZOLAMIDE [Suspect]
     Active Substance: DORZOLAMIDE
     Indication: GLAUCOMA
     Dosage: 1 GTT, Q12H
     Route: 047
     Dates: start: 20150113, end: 20150611
  3. AZOPT [Suspect]
     Active Substance: BRINZOLAMIDE
     Indication: GLAUCOMA
     Dosage: 1 DF, BID
     Route: 047
     Dates: start: 20150611, end: 20151001
  4. GANFORT [Concomitant]
     Active Substance: BIMATOPROST\TIMOLOL
     Indication: GLAUCOMA
     Dosage: 1 DF, QD (MORNING)
     Route: 047
     Dates: start: 20140903

REACTIONS (4)
  - Dizziness [Unknown]
  - Malaise [Recovered/Resolved]
  - Epistaxis [Recovered/Resolved]
  - Dyspnoea [Recovered/Resolved]

NARRATIVE: CASE EVENT DATE: 20150627
